FAERS Safety Report 14092055 (Version 1)
Quarter: 2017Q4

REPORT INFORMATION
  Report Type: Spontaneous
  Country: US (occurrence: None)
  Receive Date: 20171013
  Receipt Date: 20171013
  Transmission Date: 20180321
  Serious: Yes (Life-Threatening, Hospitalization)
  Sender: FDA-Public Use
  Company Number: None

PATIENT
  Age: 78 Year
  Sex: Male
  Weight: 94.35 kg

DRUGS (1)
  1. LINZESS [Suspect]
     Active Substance: LINACLOTIDE

REACTIONS (6)
  - Concussion [None]
  - Fall [None]
  - Loss of consciousness [None]
  - Head injury [None]
  - Wound [None]
  - Skin odour abnormal [None]

NARRATIVE: CASE EVENT DATE: 20160612
